FAERS Safety Report 9814916 (Version 2)
Quarter: 2014Q1

REPORT INFORMATION
  Report Type: Spontaneous
  Country: IN (occurrence: IN)
  Receive Date: 20140113
  Receipt Date: 20140113
  Transmission Date: 20141002
  Serious: Yes (Hospitalization)
  Sender: FDA-Public Use
  Company Number: IN-BAXTER-2013BAX049653

PATIENT
  Age: 76 Year
  Sex: Female

DRUGS (1)
  1. DIANEAL PD-2 PERITONEAL DIALISIS SOLUTION ULTRABAG WITH 2.5% DEXTROSE [Suspect]
     Indication: PERITONEAL DIALYSIS
     Route: 033

REACTIONS (2)
  - Urosepsis [Recovered/Resolved]
  - Peritonitis bacterial [Recovered/Resolved]
